FAERS Safety Report 4557047-4 (Version None)
Quarter: 2005Q1

REPORT INFORMATION
  Report Type: 
  Country: None (occurrence: None)
  Receive Date: 20050118
  Receipt Date: 20050103
  Transmission Date: 20050727
  Serious: No
  Sender: FDA-Public Use
  Company Number: 2005AC00008

PATIENT
  Age: 79 Year
  Sex: Female

DRUGS (11)
  1. CASODEX [Suspect]
     Dosage: 50 MG DAILY PO
     Route: 048
     Dates: start: 20041105
  2. DIAZEPAM [Concomitant]
  3. LORAZEPAM [Concomitant]
  4. MICROLAX [Concomitant]
  5. SIMVASTATIN [Concomitant]
  6. TOLBUTAMIDE [Concomitant]
  7. XPRAEP [Concomitant]
  8. ACTONEL [Concomitant]
  9. ASCAL CARDIO [Concomitant]
  10. AVANDIA [Concomitant]
  11. CALCICHEW [Concomitant]

REACTIONS (1)
  - BONE MARROW DEPRESSION [None]
